FAERS Safety Report 17956921 (Version 1)
Quarter: 2020Q2

REPORT INFORMATION
  Report Type: Spontaneous
  Country: US (occurrence: US)
  Receive Date: 20200629
  Receipt Date: 20200629
  Transmission Date: 20200714
  Serious: No
  Sender: FDA-Public Use
  Company Number: None

PATIENT
  Age: 68 Year
  Sex: Male
  Weight: 61.2 kg

DRUGS (21)
  1. ABIRATERONE. [Suspect]
     Active Substance: ABIRATERONE ACETATE
     Indication: PROSTATE CANCER
     Route: 048
     Dates: start: 20200103, end: 20200629
  2. VITAMIN B12 [Concomitant]
     Active Substance: CYANOCOBALAMIN
  3. PREDNISONE. [Concomitant]
     Active Substance: PREDNISONE
  4. ABIRATERONE. [Suspect]
     Active Substance: ABIRATERONE ACETATE
     Indication: METASTASES TO BONE
     Route: 048
     Dates: start: 20200103, end: 20200629
  5. OCEAN SALINE NASAL SPRAY [Concomitant]
     Active Substance: SODIUM CHLORIDE
  6. THIAMINE. [Concomitant]
     Active Substance: THIAMINE
  7. LACTASE ENZYME [Concomitant]
  8. FLONASE [Concomitant]
     Active Substance: FLUTICASONE PROPIONATE
  9. PULMICORT TURBUHALER [Concomitant]
     Active Substance: BUDESONIDE
  10. BICALUTAMIDE. [Concomitant]
     Active Substance: BICALUTAMIDE
  11. TAMSULOSIN [Concomitant]
     Active Substance: TAMSULOSIN
  12. SENNOSIDES. [Concomitant]
     Active Substance: SENNOSIDES
  13. NORCO [Concomitant]
     Active Substance: ACETAMINOPHEN\HYDROCODONE BITARTRATE
  14. STIOLTO RESPIMAT [Concomitant]
     Active Substance: OLODATEROL HYDROCHLORIDE\TIOTROPIUM BROMIDE MONOHYDRATE
  15. MEGESTROL ACETATE. [Concomitant]
     Active Substance: MEGESTROL ACETATE
  16. ABIRATERONE ACTETATE [Concomitant]
  17. FOLIC ACID. [Concomitant]
     Active Substance: FOLIC ACID
  18. VENTOLIN HFA [Concomitant]
     Active Substance: ALBUTEROL SULFATE
  19. MULTIVITAMIN ADULTS [Concomitant]
  20. LUPRON DEPOT (1 MONTH) [Concomitant]
  21. FEXOFENADINE [Concomitant]
     Active Substance: FEXOFENADINE HYDROCHLORIDE

REACTIONS (2)
  - Metastases to bone [None]
  - Disease progression [None]
